FAERS Safety Report 23204341 (Version 2)
Quarter: 2025Q2

REPORT INFORMATION
  Report Type: Spontaneous
  Country: FR (occurrence: FR)
  Receive Date: 20231120
  Receipt Date: 20250625
  Transmission Date: 20250717
  Serious: Yes (Hospitalization)
  Sender: SANDOZ
  Company Number: FR-ROCHE-3382672

PATIENT
  Age: 70 Year
  Sex: Female
  Weight: 72 kg

DRUGS (15)
  1. CYCLOPHOSPHAMIDE [Suspect]
     Active Substance: CYCLOPHOSPHAMIDE
     Indication: Diffuse large B-cell lymphoma
     Dosage: UNK UNK, TIW 750MG/M2 TIW - START DATE OF MOST RECENT DOSE OF STUDY DRUGPRIOR TO SAE 08-DEC-2022 , D
     Route: 042
     Dates: start: 20220823
  2. DOXORUBICIN HYDROCHLORIDE [Suspect]
     Active Substance: DOXORUBICIN HYDROCHLORIDE
     Indication: Diffuse large B-cell lymphoma
     Dosage: UNK, TIW 50 MG/M2 TIW - START DATE OF MOST RECENT DOSE OF STUDY DRUGPRIOR TO SAE, 08-DEC-2022, DOSE
     Route: 042
     Dates: start: 20220823
  3. GLOFITAMAB [Suspect]
     Active Substance: GLOFITAMAB
     Indication: Diffuse large B-cell lymphoma
     Dosage: 2.5 MG, TIW START DATE OF MOST RECENT DOSE OF STUDY DRUGPRIOR TO SAE, 02-MAR-2023, 30 MG
     Route: 042
     Dates: start: 20221012
  4. METHYLPREDNISOLONE [Suspect]
     Active Substance: METHYLPREDNISOLONE
     Indication: Diffuse large B-cell lymphoma
     Dosage: 80 MG, TIW START DATE OF MOST RECENT DOSE OF STUDY DRUGPRIOR TO AE/SAE , 08-DEC-2022
     Route: 042
     Dates: start: 20220823
  5. PREDNISONE [Suspect]
     Active Substance: PREDNISONE
     Indication: Diffuse large B-cell lymphoma
     Dosage: 100 MG, TIW START DATE OF MOST RECENT DOSE OF STUDY DRUGPRIOR TO AE/SAE , 12-DEC-2022 , DOSE LAST ST
     Route: 065
     Dates: start: 20220824
  6. RITUXIMAB [Suspect]
     Active Substance: RITUXIMAB
     Indication: Diffuse large B-cell lymphoma
     Route: 042
     Dates: start: 20220823
  7. VINCRISTINE [Suspect]
     Active Substance: VINCRISTINE
     Indication: Diffuse large B-cell lymphoma
     Dosage: UNK UNK, TIW 1.4 MG/M2 TIW - START DATE OF MOST RECENT DOSE OF STUDY DRUGPRIOR TO AE/SAE 08-DEC-2022
     Route: 042
     Dates: start: 20220823
  8. APIXABAN [Concomitant]
     Active Substance: APIXABAN
     Indication: Thrombosis
     Route: 065
     Dates: start: 20221026
  9. ATORVASTATIN [Concomitant]
     Active Substance: ATORVASTATIN
     Indication: Hypercholesterolaemia
     Dosage: 10 MG, QD
     Route: 065
  10. LEUCOVORIN CALCIUM [Concomitant]
     Active Substance: LEUCOVORIN CALCIUM
     Indication: Product used for unknown indication
     Route: 065
     Dates: start: 20220823
  11. CANDESARTAN [Concomitant]
     Active Substance: CANDESARTAN
     Indication: Hypertension
     Dosage: 8 MG, QD
     Route: 065
  12. OXAZEPAM [Concomitant]
     Active Substance: OXAZEPAM
     Indication: Product used for unknown indication
     Dosage: 10 MG, QD
     Route: 065
  13. SULFAMETHOXAZOLE [Concomitant]
     Active Substance: SULFAMETHOXAZOLE
     Indication: Product used for unknown indication
     Route: 065
     Dates: start: 20220824
  14. TRIMETHOPRIM [Concomitant]
     Active Substance: TRIMETHOPRIM
     Indication: Product used for unknown indication
     Route: 065
     Dates: start: 20220824
  15. VALACYCLOVIR HYDROCHLORIDE [Concomitant]
     Active Substance: VALACYCLOVIR HYDROCHLORIDE
     Indication: Product used for unknown indication
     Route: 065
     Dates: start: 20220824

REACTIONS (1)
  - Pneumonia [Recovered/Resolved]

NARRATIVE: CASE EVENT DATE: 20230504
